FAERS Safety Report 9967011 (Version 1)
Quarter: 2014Q1

REPORT INFORMATION
  Report Type: Report from Study
  Country: US (occurrence: US)
  Receive Date: 20140305
  Receipt Date: 20140305
  Transmission Date: 20141002
  Serious: Yes (Hospitalization)
  Sender: FDA-Public Use
  Company Number: US-ASTRAZENECA-2014SE09231

PATIENT
  Age: 57 Year
  Sex: Male
  Weight: 88.5 kg

DRUGS (8)
  1. NEXIUM [Suspect]
     Route: 048
  2. LISINOPRIL [Suspect]
     Indication: BLOOD PRESSURE ABNORMAL
     Route: 048
  3. OMEPRAZOLE [Suspect]
     Indication: ULCER
     Route: 048
     Dates: start: 201312, end: 201401
  4. PROTONIX [Suspect]
     Indication: ULCER
     Route: 048
     Dates: start: 201401
  5. EFFIENT [Concomitant]
     Indication: BLOOD DISORDER
     Route: 048
     Dates: start: 201401
  6. ASPIRIN [Concomitant]
     Indication: MYOCARDIAL INFARCTION
     Route: 048
     Dates: start: 201401
  7. CARVEDILOL [Concomitant]
     Route: 048
     Dates: start: 201401
  8. TRAZADONE [Concomitant]
     Indication: SLEEP DISORDER
     Route: 048
     Dates: start: 2013

REACTIONS (11)
  - Condition aggravated [Unknown]
  - Myocardial infarction [Unknown]
  - Adverse drug reaction [Unknown]
  - Cough [Unknown]
  - Muscle spasms [Unknown]
  - Abdominal distension [Unknown]
  - Chest discomfort [Unknown]
  - Dysphagia [Unknown]
  - Dyspepsia [Unknown]
  - Dizziness [Unknown]
  - Intentional drug misuse [Unknown]
